FAERS Safety Report 5471736-9 (Version None)
Quarter: 2007Q3

REPORT INFORMATION
  Report Type: 
  Country: None (occurrence: None)
  Receive Date: 20070928
  Receipt Date: 20070501
  Transmission Date: 20080115
  Serious: No
  Sender: FDA-Public Use
  Company Number: US-BRISTOL-MYERS SQUIBB COMPANY-13765607

PATIENT
  Age: 59 Year
  Sex: Female

DRUGS (1)
  1. DEFINITY [Suspect]

REACTIONS (4)
  - BACK PAIN [None]
  - CHEST PAIN [None]
  - MUSCLE SPASMS [None]
  - MUSCULOSKELETAL PAIN [None]
